FAERS Safety Report 8626449 (Version 3)
Quarter: 2012Q4

REPORT INFORMATION
  Report Type: Report from Study
  Country: JP (occurrence: JP)
  Receive Date: 20120620
  Receipt Date: 20121004
  Transmission Date: 20130627
  Serious: Yes (Death)
  Sender: FDA-Public Use
  Company Number: JP-UCBSA-059655

PATIENT
  Age: 37 Year
  Sex: Female
  Weight: 45.5 kg

DRUGS (13)
  1. E KEPPRA [Suspect]
     Indication: SIMPLE PARTIAL SEIZURES
     Route: 048
     Dates: start: 20120426, end: 20120510
  2. E KEPPRA [Suspect]
     Indication: SIMPLE PARTIAL SEIZURES
     Route: 048
     Dates: start: 20120128, end: 20120425
  3. E KEPPRA [Suspect]
     Indication: SIMPLE PARTIAL SEIZURES
     Route: 048
     Dates: start: 20120125, end: 20120127
  4. MAGMITT [Concomitant]
     Dosage: DAILY DOSE 990 MG
     Route: 048
  5. MYSTAN [Concomitant]
     Indication: SIMPLE PARTIAL SEIZURES
     Dosage: DAILY DOSE 20 MG
     Route: 048
     Dates: start: 20120201, end: 20120511
  6. TAKEPRON [Concomitant]
     Dosage: DAILY DOSE 15 MG
     Route: 048
     Dates: end: 20120511
  7. MEILAX [Concomitant]
     Dosage: DAILY DOSE 1 MG
     Route: 048
     Dates: end: 20120511
  8. PANVITAN [Concomitant]
     Dosage: DAILY DOSE 1 GM
     Route: 048
     Dates: end: 20120511
  9. RINDERON [Concomitant]
     Dosage: DAILY DOSE 0.5 MG
     Route: 048
     Dates: end: 20120511
  10. MUCODYNE [Concomitant]
     Dosage: DAILY DOSE 1500 MG
     Route: 048
     Dates: start: 20120211, end: 20120511
  11. ADONA [Concomitant]
     Dosage: DAILY DOSE 90 MG
     Route: 048
     Dates: end: 20120511
  12. TRANSAMIN [Concomitant]
     Dosage: DAILY DOSE 750 MG
     Route: 048
     Dates: end: 20120511
  13. FERROMIA [Concomitant]
     Dosage: DAILY DOSE: 100 MG
     Route: 048
     Dates: end: 20120511

REACTIONS (1)
  - Lung neoplasm malignant [Fatal]
